FAERS Safety Report 25864579 (Version 9)
Quarter: 2025Q4

REPORT INFORMATION
  Report Type: Spontaneous
  Country: CA (occurrence: CA)
  Receive Date: 20250930
  Receipt Date: 20251113
  Transmission Date: 20260117
  Serious: Yes (Hospitalization, Other)
  Sender: PFIZER
  Company Number: CA-PFIZER INC-202500172682

PATIENT
  Age: 49 Year
  Sex: Female
  Weight: 52 kg

DRUGS (3)
  1. IXIFI [Suspect]
     Active Substance: INFLIXIMAB-QBTX
     Indication: Rheumatoid arthritis
     Dosage: 10 MG/KG, EVERY 5 WEEKS
     Route: 042
     Dates: start: 20250613
  2. IXIFI [Suspect]
     Active Substance: INFLIXIMAB-QBTX
     Dosage: 10 MG/KG, EVERY 5 WEEKS
     Route: 042
     Dates: start: 20250825
  3. IXIFI [Suspect]
     Active Substance: INFLIXIMAB-QBTX
     Dosage: 10 MG/KG (520 MG), AFTER 10 WEEKS AND 4 DAYS
     Route: 042
     Dates: start: 20251107

REACTIONS (29)
  - Dehydration [Unknown]
  - Diarrhoea [Recovered/Resolved]
  - Gastrointestinal disorder [Unknown]
  - Angina pectoris [Not Recovered/Not Resolved]
  - Therapeutic response shortened [Unknown]
  - Therapeutic product effect delayed [Unknown]
  - Abdominal discomfort [Unknown]
  - Presyncope [Not Recovered/Not Resolved]
  - General physical health deterioration [Unknown]
  - Rhinorrhoea [Recovering/Resolving]
  - Productive cough [Recovering/Resolving]
  - Nasopharyngitis [Recovered/Resolved]
  - Influenza like illness [Recovering/Resolving]
  - Decreased appetite [Recovering/Resolving]
  - Condition aggravated [Not Recovered/Not Resolved]
  - Oral fungal infection [Unknown]
  - Headache [Recovering/Resolving]
  - Abdominal pain upper [Not Recovered/Not Resolved]
  - Abdominal pain [Not Recovered/Not Resolved]
  - Pain [Not Recovered/Not Resolved]
  - Nausea [Recovering/Resolving]
  - Fatigue [Not Recovered/Not Resolved]
  - Constipation [Unknown]
  - Viral infection [Unknown]
  - Inflammation [Unknown]
  - Upper respiratory tract infection [Recovered/Resolved]
  - Cough [Unknown]
  - Dyspnoea exertional [Unknown]
  - Asthenia [Not Recovered/Not Resolved]

NARRATIVE: CASE EVENT DATE: 20250101
